FAERS Safety Report 18798996 (Version 1)
Quarter: 2021Q1

REPORT INFORMATION
  Report Type: Spontaneous
  Country: US (occurrence: US)
  Receive Date: 20210128
  Receipt Date: 20210128
  Transmission Date: 20210419
  Serious: Yes (Hospitalization)
  Sender: FDA-Public Use
  Company Number: None

PATIENT
  Age: 51 Year
  Sex: Male

DRUGS (1)
  1. BAMLANIVIMAB. [Suspect]
     Active Substance: BAMLANIVIMAB
     Indication: COVID-19
     Route: 042
     Dates: start: 20210111, end: 20210111

REACTIONS (11)
  - Hyperhidrosis [None]
  - Syncope [None]
  - Fatigue [None]
  - Dizziness [None]
  - Nasal congestion [None]
  - Infusion related reaction [None]
  - Nausea [None]
  - Myalgia [None]
  - Cough [None]
  - Blood pressure increased [None]
  - Atrial fibrillation [None]

NARRATIVE: CASE EVENT DATE: 20210111
